FAERS Safety Report 15340494 (Version 1)
Quarter: 2018Q3

REPORT INFORMATION
  Report Type: Spontaneous
  Country: US (occurrence: US)
  Receive Date: 20180831
  Receipt Date: 20180831
  Transmission Date: 20181010
  Serious: No
  Sender: FDA-Public Use
  Company Number: US-BAUSCH-BL-2018-007094

PATIENT
  Age: 55 Year
  Sex: Female
  Weight: 54.93 kg

DRUGS (3)
  1. ALREX [Suspect]
     Active Substance: LOTEPREDNOL ETABONATE
     Indication: OCULAR HYPERAEMIA
     Dosage: ONE DROP IN BOTH THE EYES
     Route: 047
     Dates: start: 20180228, end: 20180303
  2. ZYRTEC [Suspect]
     Active Substance: CETIRIZINE HYDROCHLORIDE
     Indication: PRODUCT USED FOR UNKNOWN INDICATION
     Route: 065
     Dates: start: 20180228
  3. ALREX [Suspect]
     Active Substance: LOTEPREDNOL ETABONATE
     Indication: LACRIMATION INCREASED

REACTIONS (3)
  - Drug ineffective [Recovered/Resolved]
  - Condition aggravated [Not Recovered/Not Resolved]
  - Eye irritation [Unknown]

NARRATIVE: CASE EVENT DATE: 2018
